FAERS Safety Report 14918170 (Version 1)
Quarter: 2018Q2

REPORT INFORMATION
  Report Type: Spontaneous
  Country: FR (occurrence: FR)
  Receive Date: 20180521
  Receipt Date: 20180521
  Transmission Date: 20180711
  Serious: Yes (Other)
  Sender: FDA-Public Use
  Company Number: FR-MERCK KGAA-2048128

PATIENT
  Age: 44 Year
  Sex: Female

DRUGS (1)
  1. NOVOTHYROX [Suspect]
     Active Substance: LEVOTHYROXINE SODIUM
     Indication: PRODUCT USED FOR UNKNOWN INDICATION

REACTIONS (30)
  - Negative thoughts [None]
  - Depressed mood [None]
  - Hyperhidrosis [None]
  - Migraine [None]
  - Neck pain [None]
  - Peripheral swelling [None]
  - Aggression [None]
  - Psychiatric symptom [None]
  - Feeling of body temperature change [None]
  - Disturbance in attention [None]
  - Asthenia [None]
  - Decreased activity [None]
  - Poor quality sleep [None]
  - Alopecia [None]
  - Headache [None]
  - Vomiting [None]
  - Decreased interest [None]
  - Stress [None]
  - Mood swings [None]
  - Back pain [None]
  - Fatigue [None]
  - Muscle spasms [None]
  - Blood thyroid stimulating hormone increased [None]
  - Tension [None]
  - Social avoidant behaviour [None]
  - Pain [None]
  - Abdominal pain [None]
  - Irritability [None]
  - Nausea [None]
  - Insomnia [None]

NARRATIVE: CASE EVENT DATE: 2017
